FAERS Safety Report 10793729 (Version 1)
Quarter: 2015Q1

REPORT INFORMATION
  Report Type: Spontaneous
  Country: US (occurrence: US)
  Receive Date: 20150213
  Receipt Date: 20150213
  Transmission Date: 20150721
  Serious: No
  Sender: FDA-Public Use
  Company Number: US-PFIZER INC-2015055426

PATIENT
  Age: 83 Year
  Sex: Female
  Weight: 66 kg

DRUGS (2)
  1. SYNTHROID [Concomitant]
     Active Substance: LEVOTHYROXINE SODIUM
     Indication: THYROID DISORDER
     Dosage: UNK
  2. CELECOXIB. [Suspect]
     Active Substance: CELECOXIB
     Indication: OSTEOARTHRITIS
     Dosage: 200 MG, EVERY DAY AS NEEDED FOR 2 WEEKS THEN HOLD FOR 10 DAYS THEN REPEAT THE CYCLE
     Dates: start: 20150114

REACTIONS (3)
  - Abdominal discomfort [Unknown]
  - Pain in extremity [Unknown]
  - Drug dose omission [Unknown]
